FAERS Safety Report 8910052 (Version 1)
Quarter: 2012Q4

REPORT INFORMATION
  Report Type: 
  Country: US (occurrence: US)
  Receive Date: 20121114
  Receipt Date: 20121114
  Transmission Date: 20130627
  Serious: No
  Sender: FDA-Public Use
  Company Number: US-009507513-1211USA005419

PATIENT
  Sex: Male

DRUGS (3)
  1. CLARITIN-D 24 HOUR [Suspect]
     Indication: RHINORRHOEA
     Dosage: UNK, Unknown
     Route: 048
     Dates: start: 20120918
  2. CLARITIN-D 24 HOUR [Suspect]
     Indication: SNEEZING
  3. CLARITIN-D 24 HOUR [Suspect]
     Indication: UPPER RESPIRATORY TRACT CONGESTION

REACTIONS (1)
  - Drug ineffective [Unknown]
